FAERS Safety Report 21491053 (Version 2)
Quarter: 2022Q4

REPORT INFORMATION
  Report Type: Report from Study
  Country: US (occurrence: US)
  Receive Date: 20221021
  Receipt Date: 20221201
  Transmission Date: 20230113
  Serious: No
  Sender: FDA-Public Use
  Company Number: US-ABBVIE-4158123

PATIENT
  Sex: Male

DRUGS (3)
  1. SKYRIZI [Suspect]
     Active Substance: RISANKIZUMAB-RZAA
     Indication: Product used for unknown indication
     Route: 058
  2. Pfizer/BioNTech covid-19 vaccone [Concomitant]
     Indication: COVID-19 immunisation
     Dosage: 1ST DOSE
     Dates: start: 20210120, end: 20210120
  3. Pfizer/BioNTech covid-19 vaccone [Concomitant]
     Indication: COVID-19 immunisation
     Dosage: 2ND DOSE
     Dates: start: 20210220, end: 20210220

REACTIONS (2)
  - Unevaluable event [Unknown]
  - Pruritus [Unknown]
